FAERS Safety Report 6648574-4 (Version None)
Quarter: 2010Q1

REPORT INFORMATION
  Report Type: 
  Country: None (occurrence: None)
  Receive Date: 20100324
  Receipt Date: 20100319
  Transmission Date: 20100710
  Serious: Yes (Life-Threatening, Other)
  Sender: FDA-Public Use
  Company Number: US-CEPHALON-2010001592

PATIENT
  Sex: Female
  Weight: 56 kg

DRUGS (3)
  1. PROVIGIL [Suspect]
     Indication: WITHDRAWAL SYNDROME
     Route: 048
     Dates: start: 20100101
  2. KLONOPIN [Concomitant]
     Dates: start: 20100312
  3. DEPLIN [Concomitant]
     Indication: CEREBRAL DISORDER
     Dates: start: 20091201

REACTIONS (5)
  - CRYING [None]
  - DEPRESSION [None]
  - FEAR [None]
  - MENTAL DISORDER [None]
  - SUICIDAL IDEATION [None]
